FAERS Safety Report 9640833 (Version 1)
Quarter: 2013Q4

REPORT INFORMATION
  Report Type: Report from Study
  Country: US (occurrence: US)
  Receive Date: 20131023
  Receipt Date: 20131023
  Transmission Date: 20140711
  Serious: No
  Sender: FDA-Public Use
  Company Number: US-ABBVIE-13P-163-1066418-00

PATIENT
  Age: 28 Year
  Sex: Female
  Weight: 68.1 kg

DRUGS (4)
  1. LUPRON DEPOT [Suspect]
     Indication: ENDOMETRIOSIS
     Route: 030
     Dates: start: 20130227
  2. UNKNOWN MEDICATION [Concomitant]
     Indication: ABDOMINAL PAIN UPPER
  3. UNKNOWN MEDICATION [Concomitant]
     Indication: ANXIETY
  4. UNKNOWN MEDICATION [Concomitant]
     Indication: MIGRAINE

REACTIONS (2)
  - Abdominal pain lower [Not Recovered/Not Resolved]
  - Hot flush [Unknown]
